FAERS Safety Report 6864242-8 (Version None)
Quarter: 2010Q3

REPORT INFORMATION
  Report Type: 
  Country: None (occurrence: None)
  Receive Date: 20100721
  Receipt Date: 20100720
  Transmission Date: 20110219
  Serious: Yes (Life-Threatening, Disabling)
  Sender: FDA-Public Use
  Company Number: NL-MERCK-1007NLD00016

PATIENT
  Age: 55 Year
  Sex: Female
  Weight: 72 kg

DRUGS (1)
  1. ZETIA [Suspect]
     Indication: HYPERCHOLESTEROLAEMIA
     Route: 048
     Dates: start: 19980101

REACTIONS (5)
  - ARTHRALGIA [None]
  - COORDINATION ABNORMAL [None]
  - FATIGUE [None]
  - MYALGIA [None]
  - PARAESTHESIA [None]
